FAERS Safety Report 12247459 (Version 1)
Quarter: 2016Q2

REPORT INFORMATION
  Report Type: Report from Study
  Country: US (occurrence: US)
  Receive Date: 20160407
  Receipt Date: 20160407
  Transmission Date: 20160815
  Serious: Yes (Hospitalization)
  Sender: FDA-Public Use
  Company Number: US-TAKEDA-TPA2013A04070

PATIENT

DRUGS (8)
  1. FLOMAX [Concomitant]
     Active Substance: TAMSULOSIN HYDROCHLORIDE
     Route: 048
  2. IRBESARTAN. [Concomitant]
     Active Substance: IRBESARTAN
     Route: 048
  3. PIOGLITAZONE. [Suspect]
     Active Substance: PIOGLITAZONE
     Indication: PRODUCT USED FOR UNKNOWN INDICATION
     Route: 048
     Dates: start: 20091116, end: 20091214
  4. PIOGLITAZONE. [Suspect]
     Active Substance: PIOGLITAZONE
     Route: 048
     Dates: start: 20091215, end: 20100113
  5. ADVAIR HFA [Concomitant]
     Active Substance: FLUTICASONE PROPIONATE\SALMETEROL XINAFOATE
  6. PIOGLITAZONE. [Suspect]
     Active Substance: PIOGLITAZONE
     Route: 048
     Dates: start: 20100114
  7. CRESTOR [Concomitant]
     Active Substance: ROSUVASTATIN CALCIUM
     Route: 048
  8. RISEDRONATE [Concomitant]
     Active Substance: RISEDRONATE SODIUM
     Route: 048

REACTIONS (3)
  - Skull fracture [Recovered/Resolved]
  - Fall [Recovered/Resolved]
  - Traumatic intracranial haemorrhage [Recovered/Resolved]

NARRATIVE: CASE EVENT DATE: 20121207
